FAERS Safety Report 21917288 (Version 2)
Quarter: 2023Q1

REPORT INFORMATION
  Report Type: Spontaneous
  Country: FR (occurrence: FR)
  Receive Date: 20230126
  Receipt Date: 20230301
  Transmission Date: 20230417
  Serious: Yes (Life-Threatening, Hospitalization, Disabling, Other)
  Sender: FDA-Public Use
  Company Number: FR-GILEAD-2023-0613797

PATIENT
  Age: 66 Year
  Sex: Male
  Weight: 68 kg

DRUGS (11)
  1. BREXUCABTAGENE AUTOLEUCEL [Suspect]
     Active Substance: BREXUCABTAGENE AUTOLEUCEL
     Indication: Mantle cell lymphoma
     Dosage: UNK
     Route: 065
     Dates: start: 20220106
  2. RITUXIMAB [Concomitant]
     Active Substance: RITUXIMAB
     Indication: Mantle cell lymphoma recurrent
     Dosage: UNK
     Dates: start: 20211203
  3. CYCLOPHOSPHAMIDE [Concomitant]
     Active Substance: CYCLOPHOSPHAMIDE
     Indication: Mantle cell lymphoma recurrent
     Dosage: UNK
     Dates: start: 20211203
  4. EPIRUBICIN [Concomitant]
     Active Substance: EPIRUBICIN
     Indication: Mantle cell lymphoma recurrent
     Dosage: UNK
     Dates: start: 20211203
  5. ONCOVIN [Concomitant]
     Active Substance: VINCRISTINE SULFATE
     Indication: Mantle cell lymphoma recurrent
     Dosage: UNK
     Dates: start: 20211203
  6. PREDNISONE [Concomitant]
     Active Substance: PREDNISONE
     Indication: Mantle cell lymphoma recurrent
     Dosage: UNK
     Dates: start: 20211203
  7. VALACYCLOVIR HYDROCHLORIDE [Concomitant]
     Active Substance: VALACYCLOVIR HYDROCHLORIDE
     Indication: Varicella zoster viraemia
     Dosage: 500 MG, BID
  8. BACTRIM [Concomitant]
     Active Substance: SULFAMETHOXAZOLE\TRIMETHOPRIM
     Indication: Antifungal prophylaxis
     Dosage: 800/160MG  3TIMES/WEEK
  9. KEPPRA [Concomitant]
     Active Substance: LEVETIRACETAM
     Indication: Epilepsy
     Dosage: 500 MG, BID
  10. KEPPRA [Concomitant]
     Active Substance: LEVETIRACETAM
     Dosage: 1000 MG, BID
     Route: 048
  11. VIMPAT [Concomitant]
     Active Substance: LACOSAMIDE
     Dosage: 100 MG, BID
     Route: 048
     Dates: start: 20220111, end: 20220324

REACTIONS (11)
  - Immune effector cell-associated neurotoxicity syndrome [Recovered/Resolved]
  - Cytokine release syndrome [Recovered/Resolved]
  - Neurological decompensation [Recovering/Resolving]
  - Encephalitis [Not Recovered/Not Resolved]
  - Systemic candida [Recovered/Resolved]
  - Empyema [Recovered/Resolved]
  - Escherichia bacteraemia [Recovered/Resolved]
  - Clostridium difficile colitis [Recovered/Resolved]
  - Staphylococcal infection [Unknown]
  - COVID-19 [Unknown]
  - Pyrexia [Unknown]

NARRATIVE: CASE EVENT DATE: 20211201
